FAERS Safety Report 5131609-8 (Version None)
Quarter: 2006Q4

REPORT INFORMATION
  Report Type: 
  Country: None (occurrence: None)
  Receive Date: 20061020
  Receipt Date: 20061009
  Transmission Date: 20070319
  Serious: Yes (Hospitalization)
  Sender: FDA-Public Use
  Company Number: PHBS2006ES15608

PATIENT
  Age: 79 Year
  Sex: Female

DRUGS (2)
  1. TRILEPTAL [Suspect]
     Indication: EPILEPSY
     Dosage: 600 MG/DAY
     Route: 048
     Dates: start: 20050407, end: 20051209
  2. HYDROCHLOROTHIAZIDE [Suspect]
     Dosage: 12 MG/DAY
     Route: 048
     Dates: start: 20051129

REACTIONS (2)
  - DRUG INTERACTION [None]
  - HYPONATRAEMIA [None]
